FAERS Safety Report 4662961-5 (Version None)
Quarter: 2005Q2

REPORT INFORMATION
  Report Type: 
  Country: None (occurrence: None)
  Receive Date: 20050513
  Receipt Date: 20050502
  Transmission Date: 20051028
  Serious: Yes (Other)
  Sender: FDA-Public Use
  Company Number: T05-AUT-01726-01

PATIENT
  Age: 83 Year
  Sex: Male

DRUGS (13)
  1. MEMANTINE HCL [Suspect]
     Indication: DEMENTIA ALZHEIMER'S TYPE
     Dosage: 15 MG QD PO
     Route: 048
     Dates: start: 20050301, end: 20050419
  2. AQUAPHORIL (XIIPAMIDE) [Concomitant]
  3. SERMION (NICERGOLINE) [Concomitant]
  4. SEROQUEL [Concomitant]
  5. AMARYL [Concomitant]
  6. XEFO (LORNOXICAM) [Concomitant]
  7. THROMBO ASS (ACETYLSALICYLIC ACID) [Concomitant]
  8. FAMOTIDIN (FAMOTIDINE) [Concomitant]
  9. SALI-ALDOPUR [Concomitant]
  10. PURINOL (ALLOPURINOL) [Concomitant]
  11. OLEOVIT [Concomitant]
  12. VOLTAREN GEL [Concomitant]
  13. FURON (FUROSEMIDE) [Concomitant]

REACTIONS (6)
  - BLOOD CREATININE INCREASED [None]
  - BLOOD GLUCOSE INCREASED [None]
  - BLOOD TRIGLYCERIDES INCREASED [None]
  - BLOOD UREA INCREASED [None]
  - GLYCOSYLATED HAEMOGLOBIN INCREASED [None]
  - RENAL FUNCTION TEST ABNORMAL [None]
